FAERS Safety Report 6069992-1 (Version None)
Quarter: 2009Q1

REPORT INFORMATION
  Report Type: 
  Country: None (occurrence: None)
  Receive Date: 20090209
  Receipt Date: 20090127
  Transmission Date: 20090719
  Serious: Yes (Other)
  Sender: FDA-Public Use
  Company Number: PHEH2009US01139

PATIENT
  Sex: Female

DRUGS (1)
  1. RECLAST [Suspect]
     Dosage: UNK
     Dates: start: 20071128

REACTIONS (6)
  - JAW DISORDER [None]
  - MUSCULAR WEAKNESS [None]
  - MYALGIA [None]
  - RADICULITIS [None]
  - TOOTH DISORDER [None]
  - WALKING DISABILITY [None]
